FAERS Safety Report 4577126-5 (Version None)
Quarter: 2005Q1

REPORT INFORMATION
  Report Type: 
  Country: None (occurrence: None)
  Receive Date: 20050208
  Receipt Date: 20050126
  Transmission Date: 20050727
  Serious: Yes (Other)
  Sender: FDA-Public Use
  Company Number: 2004093432

PATIENT
  Age: 85 Year
  Sex: Female

DRUGS (3)
  1. CELEBREX [Suspect]
     Indication: BACK PAIN
     Dosage: 200 MG (200 MG, 1 IN 1 D), ORAL
     Route: 048
     Dates: start: 20030701, end: 20031101
  2. ULTRACET [Suspect]
     Indication: BACK PAIN
     Dosage: ORAL
     Route: 048
     Dates: start: 20030701, end: 20030801
  3. ALENDRONATE SODIUM [Concomitant]

REACTIONS (9)
  - ANOREXIA [None]
  - BLOOD PRESSURE DECREASED [None]
  - DIZZINESS [None]
  - DYSENTERY [None]
  - EATING DISORDER [None]
  - ERUCTATION [None]
  - FLATULENCE [None]
  - NAUSEA [None]
  - WEIGHT DECREASED [None]
